FAERS Safety Report 7293976-9 (Version None)
Quarter: 2011Q1

REPORT INFORMATION
  Report Type: 
  Country: None (occurrence: None)
  Receive Date: 20110215
  Receipt Date: 20110209
  Transmission Date: 20110831
  Serious: Yes (Other)
  Sender: FDA-Public Use
  Company Number: CHPA2011US02629

PATIENT
  Age: 49 Year
  Sex: Male

DRUGS (1)
  1. THERAFLU NIGHTTIME SEVERE COLD WARMING SYRUP [Suspect]
     Indication: SLEEP DISORDER
     Dosage: 6 TSP, QHS
     Route: 048
     Dates: start: 20110101

REACTIONS (2)
  - BLOOD PRESSURE INCREASED [None]
  - OFF LABEL USE [None]
